FAERS Safety Report 6676059-8 (Version None)
Quarter: 2010Q2

REPORT INFORMATION
  Report Type: 
  Country: None (occurrence: None)
  Receive Date: 20100412
  Receipt Date: 20100330
  Transmission Date: 20101027
  Serious: Yes (Other)
  Sender: FDA-Public Use
  Company Number: DK-JNJFOC-20100401262

PATIENT

DRUGS (7)
  1. CAELYX [Suspect]
     Indication: SARCOMA
     Route: 042
  2. IFOSFAMIDE [Suspect]
     Indication: SARCOMA
     Route: 042
  3. MESNA [Suspect]
     Indication: SARCOMA
     Dosage: DRUG DOSE 1.2G/M2 GIVEN DAILY AT 4 HOURS AND 8 HOURS
     Route: 050
  4. MESNA [Suspect]
     Dosage: GIVEN AS A BOLUS
     Route: 050
  5. DEXTROSE [Concomitant]
     Route: 065
  6. MANNITOL [Concomitant]
     Route: 065
  7. SODIUM BICARBONATE [Concomitant]
     Dosage: DRUG DOAGE 150-180MMOL
     Route: 042

REACTIONS (1)
  - ARRHYTHMIA [None]
